FAERS Safety Report 6417054-3 (Version None)
Quarter: 2009Q4

REPORT INFORMATION
  Report Type: 
  Country: None (occurrence: None)
  Receive Date: 20091028
  Receipt Date: 20091026
  Transmission Date: 20100525
  Serious: Yes (Other)
  Sender: FDA-Public Use
  Company Number: US-ASTRAZENECA-2007UW12095

PATIENT
  Age: 18235 Day
  Sex: Male
  Weight: 110.2 kg

DRUGS (45)
  1. SEROQUEL [Suspect]
     Indication: BIPOLAR DISORDER
     Dosage: 100 - 600 MG DAILY
     Route: 048
     Dates: start: 20000328, end: 20020418
  2. SEROQUEL [Suspect]
     Indication: DEPRESSION
     Dosage: 100 - 600 MG DAILY
     Route: 048
     Dates: start: 20000328, end: 20020418
  3. SEROQUEL [Suspect]
     Indication: SLEEP DISORDER
     Dosage: 100 - 600 MG DAILY
     Route: 048
     Dates: start: 20000328, end: 20020418
  4. SEROQUEL [Suspect]
     Indication: ANXIETY
     Dosage: 100 - 600 MG DAILY
     Route: 048
     Dates: start: 20000328, end: 20020418
  5. SEROQUEL [Suspect]
     Indication: AGITATION
     Dosage: 100 - 600 MG DAILY
     Route: 048
     Dates: start: 20000328, end: 20020418
  6. SEROQUEL [Suspect]
     Dosage: 250 - 525 MG DAILY
     Route: 048
     Dates: start: 20031023
  7. SEROQUEL [Suspect]
     Dosage: 250 - 525 MG DAILY
     Route: 048
     Dates: start: 20031023
  8. SEROQUEL [Suspect]
     Dosage: 250 - 525 MG DAILY
     Route: 048
     Dates: start: 20031023
  9. SEROQUEL [Suspect]
     Dosage: 250 - 525 MG DAILY
     Route: 048
     Dates: start: 20031023
  10. SEROQUEL [Suspect]
     Dosage: 250 - 525 MG DAILY
     Route: 048
     Dates: start: 20031023
  11. SEROQUEL [Suspect]
     Route: 048
     Dates: start: 20050214
  12. SEROQUEL [Suspect]
     Route: 048
     Dates: start: 20050214
  13. SEROQUEL [Suspect]
     Route: 048
     Dates: start: 20050214
  14. SEROQUEL [Suspect]
     Route: 048
     Dates: start: 20050214
  15. SEROQUEL [Suspect]
     Route: 048
     Dates: start: 20050214
  16. ZYPREXA [Concomitant]
     Dates: start: 20050301, end: 20060707
  17. ABILIFY [Concomitant]
  18. CLOZARIL [Concomitant]
  19. HALDOL [Concomitant]
     Dates: start: 20041013
  20. NAVANE [Concomitant]
     Dosage: 5 MG PER ORAL  OR INTRAMUSCULAR TWO TIMES A DAY.
     Dates: start: 19931223
  21. STELAZINE [Concomitant]
  22. THORAZINE [Concomitant]
     Dosage: 100 MG  1000 MG AS AND WHEN REQUIRED
     Dates: start: 19830930
  23. WELLBUTRIN SR [Concomitant]
     Dosage: 150 - 300 MG DAILY
     Route: 048
     Dates: start: 20010808
  24. LITHOBID [Concomitant]
     Dosage: 600 MG-900 MG
     Route: 048
     Dates: start: 19830930
  25. EFFEXOR XR [Concomitant]
     Dosage: 75 MG-300 MG DAILY
     Route: 048
  26. CLARITIN [Concomitant]
     Route: 048
     Dates: start: 20000329
  27. PRILOSEC [Concomitant]
     Route: 048
     Dates: start: 20000328
  28. SERAX [Concomitant]
     Dosage: 60 MG FOUR TIMES A DAY, AS REQUIRED
     Route: 048
     Dates: start: 19860101
  29. SERAX [Concomitant]
     Route: 048
     Dates: start: 20000328
  30. ARTANE [Concomitant]
     Route: 048
     Dates: start: 20000328
  31. KLONOPIN [Concomitant]
     Indication: ANXIETY
     Dosage: 0.5 MG-2.5 MG DAILY
     Route: 048
     Dates: start: 20031218
  32. KLONOPIN [Concomitant]
     Indication: AGITATION
     Dosage: 0.5 MG-2.5 MG DAILY
     Route: 048
     Dates: start: 20031218
  33. GEODON [Concomitant]
     Dosage: 20 MG-160 MG DAILY
     Route: 048
     Dates: start: 20010328
  34. LISINOPRIL [Concomitant]
     Indication: HYPERTENSION
     Route: 048
     Dates: start: 20051107
  35. PROTONIX [Concomitant]
     Route: 048
     Dates: start: 20030623
  36. BENADRYL [Concomitant]
     Dosage: 50 MG PER ORAL  OR INTRAMUSCULAR EVERY FOUR HOURS AS REQUIRED.
     Route: 048
     Dates: start: 19861229
  37. BENADRYL [Concomitant]
     Dates: start: 20031218
  38. COLACE [Concomitant]
     Dates: start: 20030623
  39. COGENTIN [Concomitant]
     Indication: EXTRAPYRAMIDAL DISORDER
     Route: 048
     Dates: start: 19830930
  40. COGENTIN [Concomitant]
     Dosage: 1 MG-2 MG DAILY
     Route: 048
     Dates: start: 20010808
  41. TRAZODONE [Concomitant]
     Route: 048
     Dates: start: 20020130
  42. FLOMAX [Concomitant]
     Indication: URINARY RETENTION
     Dates: start: 20051114
  43. ATROVENT [Concomitant]
     Dosage: 2 SPRAYS TWO TIMES A DAY
     Route: 045
     Dates: start: 20030219
  44. RISPERIDONE [Concomitant]
     Route: 048
     Dates: start: 19940304, end: 20010620
  45. TEGRETOL [Concomitant]
     Route: 048
     Dates: start: 19870224

REACTIONS (6)
  - DIZZINESS [None]
  - FATIGUE [None]
  - NEPHROPATHY [None]
  - PARAESTHESIA [None]
  - TYPE 2 DIABETES MELLITUS [None]
  - WEIGHT INCREASED [None]
